FAERS Safety Report 5123937-7 (Version None)
Quarter: 2006Q4

REPORT INFORMATION
  Report Type: 
  Country: None (occurrence: None)
  Receive Date: 20060807
  Receipt Date: 20051025
  Transmission Date: 20070319
  Serious: Yes (Hospitalization)
  Sender: FDA-Public Use
  Company Number: 142365USA

PATIENT
  Age: 82 Year
  Sex: Female

DRUGS (5)
  1. ETODOLAC [Suspect]
     Indication: PAIN IN EXTREMITY
     Dosage: 600 MILLIGRAM QD ORAL
     Route: 048
     Dates: start: 20050425, end: 20050427
  2. SYNTHROID [Concomitant]
  3. ZOLOFT [Concomitant]
  4. HYZAAR [Concomitant]
  5. MEDROL [Concomitant]

REACTIONS (2)
  - BLOOD PRESSURE INCREASED [None]
  - PALPITATIONS [None]
